FAERS Safety Report 6310571-6 (Version None)
Quarter: 2009Q3

REPORT INFORMATION
  Report Type: 
  Country: None (occurrence: None)
  Receive Date: 20090814
  Receipt Date: 20090416
  Transmission Date: 20100115
  Serious: Yes (Other)
  Sender: FDA-Public Use
  Company Number: US-BRISTOL-MYERS SQUIBB COMPANY-14594220

PATIENT
  Age: 62 Year
  Sex: Female
  Weight: 64 kg

DRUGS (4)
  1. IXABEPILONE [Suspect]
  2. XELODA [Suspect]
     Indication: BREAST CANCER
     Route: 048
     Dates: start: 20090217
  3. NEURONTIN [Concomitant]
     Indication: PAIN
     Dates: start: 20090223
  4. NAPROSYN [Concomitant]
     Indication: PAIN
     Dates: start: 20090223

REACTIONS (1)
  - BONE PAIN [None]
